FAERS Safety Report 6914312-0 (Version None)
Quarter: 2010Q3

REPORT INFORMATION
  Report Type: 
  Country: None (occurrence: None)
  Receive Date: 20100809
  Receipt Date: 20100802
  Transmission Date: 20110219
  Serious: Yes (Other)
  Sender: FDA-Public Use
  Company Number: B0669049A

PATIENT
  Sex: Male

DRUGS (1)
  1. ZINACEF [Suspect]
     Dosage: 420MG THREE TIMES PER DAY
     Route: 042
     Dates: start: 20100611, end: 20100625

REACTIONS (1)
  - PANCYTOPENIA [None]
